FAERS Safety Report 23857493 (Version 1)
Quarter: 2024Q2

REPORT INFORMATION
  Report Type: Spontaneous
  Country: CA (occurrence: CA)
  Receive Date: 20240515
  Receipt Date: 20240515
  Transmission Date: 20240716
  Serious: Yes (Other)
  Sender: FDA-Public Use
  Company Number: CA-AMERICAN REGENT INC-2024001728

PATIENT
  Age: 36 Year
  Sex: Female

DRUGS (1)
  1. VENOFER [Suspect]
     Active Substance: IRON SUCROSE
     Indication: Product used for unknown indication
     Dosage: UNK; 20 MG/ML
     Route: 065

REACTIONS (4)
  - Erythema [Unknown]
  - Throat tightness [Unknown]
  - Chest discomfort [Unknown]
  - Pruritus [Unknown]
